FAERS Safety Report 14904743 (Version 1)
Quarter: 2018Q2

REPORT INFORMATION
  Report Type: Spontaneous
  Country: US (occurrence: US)
  Receive Date: 20180517
  Receipt Date: 20180517
  Transmission Date: 20180711
  Serious: No
  Sender: FDA-Public Use
  Company Number: US-SA-2017SA149338

PATIENT
  Sex: Female

DRUGS (2)
  1. LANTUS SOLOSTAR [Suspect]
     Active Substance: INSULIN GLARGINE
     Indication: TYPE 2 DIABETES MELLITUS
     Dosage: DOSE:10 UNIT(S)
     Route: 051
     Dates: start: 20170802, end: 20170804
  2. SOLOSTAR [Suspect]
     Active Substance: DEVICE
     Dates: start: 20170802, end: 20170804

REACTIONS (5)
  - Eye pain [Unknown]
  - Pain in extremity [Unknown]
  - Swollen tongue [Unknown]
  - Abdominal discomfort [Unknown]
  - Eye swelling [Unknown]

NARRATIVE: CASE EVENT DATE: 20170802
